FAERS Safety Report 8213342-9 (Version None)
Quarter: 2012Q1

REPORT INFORMATION
  Report Type: 
  Country: None (occurrence: None)
  Receive Date: 20120315
  Receipt Date: 20120313
  Transmission Date: 20120608
  Serious: Yes (Other)
  Sender: FDA-Public Use
  Company Number: US-PFIZER INC-2012066631

PATIENT
  Age: 63 Year
  Sex: Female
  Weight: 67.1 kg

DRUGS (6)
  1. PREMARIN [Suspect]
     Indication: VULVOVAGINAL DRYNESS
     Dosage: UNK, ONCE
     Route: 067
     Dates: start: 20051017, end: 20051017
  2. FLUOXETINE [Concomitant]
     Indication: DEPRESSION
     Dosage: 40 MG, DAILY
     Dates: end: 20120201
  3. LEVOXYL [Concomitant]
     Indication: HYPOTHYROIDISM
     Dosage: 175 MG, DAILY
  4. PREMARIN [Suspect]
     Indication: VULVOVAGINAL PAIN
  5. WELLBUTRIN XL [Concomitant]
     Indication: DEPRESSION
     Dosage: 300 MG, DAILY
     Dates: end: 20120201
  6. WELCHOL [Concomitant]
     Indication: BLOOD CHOLESTEROL INCREASED
     Dosage: 18 MG, DAILY
     Dates: end: 20120201

REACTIONS (1)
  - VAGINAL HAEMORRHAGE [None]
